FAERS Safety Report 9255370 (Version 1)
Quarter: 2013Q2

REPORT INFORMATION
  Report Type: Spontaneous
  Country: MX (occurrence: None)
  Receive Date: 20130422
  Receipt Date: 20130422
  Transmission Date: 20140414
  Serious: Yes (Disabling)
  Sender: FDA-Public Use
  Company Number: ENTC2013-0150

PATIENT
  Age: 79 Year
  Sex: Male

DRUGS (6)
  1. STALEVO (LEVODOPA, CARBIDOPA, ENTACAPONE) [Suspect]
     Indication: PARKINSON^S DISEASE
     Route: 048
     Dates: start: 20130101
  2. AKATINOL [Concomitant]
  3. OLANZAPINE [Concomitant]
  4. PREGABALIN [Concomitant]
  5. SIL-NORBORAL [Concomitant]
  6. LOSARTAN [Concomitant]

REACTIONS (1)
  - Abasia [None]
